FAERS Safety Report 7774535-8 (Version None)
Quarter: 2011Q3

REPORT INFORMATION
  Report Type: 
  Country: None (occurrence: None)
  Receive Date: 20110923
  Receipt Date: 20110923
  Transmission Date: 20111222
  Serious: Yes (Other)
  Sender: FDA-Public Use
  Company Number: None

PATIENT
  Age: 53 Year
  Sex: Male
  Weight: 77.11 kg

DRUGS (1)
  1. ATRIPLA [Suspect]
     Dosage: 1
     Route: 048
     Dates: start: 20010310, end: 20110113

REACTIONS (5)
  - ABDOMINAL DISTENSION [None]
  - GASTROOESOPHAGEAL REFLUX DISEASE [None]
  - ENZYME ABNORMALITY [None]
  - FLATULENCE [None]
  - HICCUPS [None]
